FAERS Safety Report 9651417 (Version 1)
Quarter: 2013Q4

REPORT INFORMATION
  Report Type: Spontaneous
  Country: IT (occurrence: IT)
  Receive Date: 20131029
  Receipt Date: 20131029
  Transmission Date: 20140711
  Serious: Yes (Other)
  Sender: FDA-Public Use
  Company Number: IT-MYLANLABS-2013S1023406

PATIENT
  Age: 36 Year
  Sex: Female

DRUGS (1)
  1. PAROXETINE [Suspect]
     Indication: PRODUCT USED FOR UNKNOWN INDICATION
     Route: 048
     Dates: start: 20130415, end: 20130415

REACTIONS (5)
  - Drug abuse [Not Recovered/Not Resolved]
  - Overdose [Not Recovered/Not Resolved]
  - Malaise [Not Recovered/Not Resolved]
  - Mydriasis [Not Recovered/Not Resolved]
  - Tremor [Not Recovered/Not Resolved]
